FAERS Safety Report 9486704 (Version 1)
Quarter: 2013Q3

REPORT INFORMATION
  Report Type: Spontaneous
  Country: US (occurrence: None)
  Receive Date: 20130827
  Receipt Date: 20130827
  Transmission Date: 20140515
  Serious: Yes (Life-Threatening, Hospitalization)
  Sender: FDA-Public Use
  Company Number: None

PATIENT
  Age: 63 None
  Sex: Female

DRUGS (6)
  1. CHLORDIAZEPOXIDE\CLIDINIUM [Suspect]
     Indication: IRRITABLE BOWEL SYNDROME
     Dates: start: 20130619, end: 20130623
  2. CHLORDIAZEPOXIDE\CLIDINIUM [Suspect]
     Indication: GASTROENTERITIS
     Dates: start: 20130619, end: 20130623
  3. HYDROXYZINE [Suspect]
  4. CLONAZEPAM [Concomitant]
  5. PERCOSET [Concomitant]
  6. L-THYROXINE [Concomitant]

REACTIONS (3)
  - Hypohidrosis [None]
  - Diarrhoea [None]
  - Vomiting [None]
